FAERS Safety Report 25653118 (Version 2)
Quarter: 2025Q3

REPORT INFORMATION
  Report Type: Spontaneous
  Country: US (occurrence: US)
  Receive Date: 20250807
  Receipt Date: 20250811
  Transmission Date: 20251021
  Serious: Yes (Life-Threatening, Hospitalization, Other)
  Sender: SANDOZ
  Company Number: US-SANDOZ-SDZ2025US056782

PATIENT
  Age: 6 Year
  Sex: Male

DRUGS (11)
  1. ECULIZUMAB [Suspect]
     Active Substance: ECULIZUMAB
     Route: 065
  2. ECULIZUMAB [Suspect]
     Active Substance: ECULIZUMAB
     Indication: Product used for unknown indication
     Route: 065
  3. IMURAN [Suspect]
     Active Substance: AZATHIOPRINE
     Indication: Immunosuppressant drug therapy
     Route: 065
  4. SIROLIMUS [Suspect]
     Active Substance: SIROLIMUS
     Indication: Product used for unknown indication
     Route: 065
  5. TACROLIMUS [Suspect]
     Active Substance: TACROLIMUS
     Indication: Immunosuppressant drug therapy
     Route: 065
  6. AMLODIPINE [Concomitant]
     Active Substance: AMLODIPINE BESYLATE
     Indication: Product used for unknown indication
     Route: 065
  7. AMOXICILLIN [Concomitant]
     Active Substance: AMOXICILLIN
     Indication: Product used for unknown indication
     Route: 065
  8. DOXYCYCLINE [Concomitant]
     Active Substance: DOXYCYCLINE
     Indication: Mycoplasma infection
     Route: 065
  9. METOPROLOL [Concomitant]
     Active Substance: METOPROLOL
     Indication: Product used for unknown indication
     Route: 065
  10. HUMAN RED BLOOD CELL [Concomitant]
     Active Substance: HUMAN RED BLOOD CELL
     Indication: Product used for unknown indication
     Route: 065
  11. SULFAMETHOXAZOLE AND TRIMETHOPRIM [Concomitant]
     Active Substance: SULFAMETHOXAZOLE\TRIMETHOPRIM
     Indication: Product used for unknown indication
     Route: 065

REACTIONS (2)
  - Autoimmune haemolytic anaemia [Recovering/Resolving]
  - Thrombotic microangiopathy [Unknown]
